FAERS Safety Report 17169263 (Version 1)
Quarter: 2019Q4

REPORT INFORMATION
  Report Type: Spontaneous
  Country: US (occurrence: US)
  Receive Date: 20191218
  Receipt Date: 20191218
  Transmission Date: 20200122
  Serious: Yes (Death)
  Sender: FDA-Public Use
  Company Number: US-CHEPLA-C20193434

PATIENT
  Age: 49 Year
  Sex: Male

DRUGS (8)
  1. OPDIVO [Concomitant]
     Active Substance: NIVOLUMAB
     Dosage: 480 MG EVERY 4 WEEKS
     Route: 065
     Dates: start: 20180108, end: 20190205
  2. AUGMENTIN [Concomitant]
     Active Substance: AMOXICILLIN\CLAVULANATE POTASSIUM
  3. ALLOPURINOL. [Concomitant]
     Active Substance: ALLOPURINOL
  4. ETOPOPHOS [Suspect]
     Active Substance: ETOPOSIDE PHOSPHATE
     Indication: SMALL CELL LUNG CANCER
     Dosage: 3-DAY CYCLE EVERY 21 DAYS
     Route: 042
     Dates: start: 20180814, end: 20180906
  5. ALBUTEROL. [Concomitant]
     Active Substance: ALBUTEROL
  6. CELEXA [Concomitant]
     Active Substance: CITALOPRAM HYDROBROMIDE
  7. DILAUDID [Concomitant]
     Active Substance: HYDROMORPHONE HYDROCHLORIDE
  8. BACLOFEN. [Concomitant]
     Active Substance: BACLOFEN

REACTIONS (2)
  - Product use issue [Recovered/Resolved]
  - Death [Fatal]

NARRATIVE: CASE EVENT DATE: 20180814
